FAERS Safety Report 14386049 (Version 1)
Quarter: 2018Q1

REPORT INFORMATION
  Report Type: Spontaneous
  Country: US (occurrence: US)
  Receive Date: 20180115
  Receipt Date: 20180115
  Transmission Date: 20180509
  Serious: No
  Sender: FDA-Public Use
  Company Number: US-VANDA PHARMACEUTICALS, INC-2017TASUS001744

PATIENT
  Age: 63 Year
  Sex: Male

DRUGS (4)
  1. HETLIOZ [Suspect]
     Active Substance: TASIMELTEON
     Indication: BLINDNESS
  2. MELATONIN [Concomitant]
     Active Substance: MELATONIN
     Indication: PRODUCT USED FOR UNKNOWN INDICATION
  3. HETLIOZ [Suspect]
     Active Substance: TASIMELTEON
     Indication: CIRCADIAN RHYTHM SLEEP DISORDER
     Dosage: 20 MG, 1 HOUR BEFORE BEDTIME
     Route: 048
     Dates: start: 20170414, end: 20170801
  4. HETLIOZ [Suspect]
     Active Substance: TASIMELTEON
     Indication: NON-24-HOUR SLEEP-WAKE DISORDER

REACTIONS (8)
  - Pain in extremity [Not Recovered/Not Resolved]
  - Hangover [Recovered/Resolved]
  - Anxiety [Recovered/Resolved]
  - Formication [Recovered/Resolved]
  - Restless legs syndrome [Recovering/Resolving]
  - Mood altered [Recovered/Resolved]
  - Tinnitus [Recovering/Resolving]
  - Drug ineffective [Unknown]

NARRATIVE: CASE EVENT DATE: 20170414
